FAERS Safety Report 21525681 (Version 1)
Quarter: 2022Q4

REPORT INFORMATION
  Report Type: Spontaneous
  Country: US (occurrence: US)
  Receive Date: 20221031
  Receipt Date: 20221031
  Transmission Date: 20230112
  Serious: No
  Sender: FDA-Public Use
  Company Number: US-ABBVIE-4177748

PATIENT
  Sex: Female

DRUGS (2)
  1. CREON [Suspect]
     Active Substance: PANCRELIPASE AMYLASE\PANCRELIPASE LIPASE\PANCRELIPASE PROTEASE
     Indication: Pancreatic failure
     Dosage: 4 WITH MEAL 1-2 WITH SNACK
     Route: 048
  2. IRON [Concomitant]
     Active Substance: IRON
     Indication: Vitamin supplementation

REACTIONS (5)
  - Weight decreased [Not Recovered/Not Resolved]
  - Hypophagia [Not Recovered/Not Resolved]
  - Flatulence [Unknown]
  - Blood iron decreased [Unknown]
  - Stress [Unknown]

NARRATIVE: CASE EVENT DATE: 20220101
